FAERS Safety Report 5834106-7 (Version None)
Quarter: 2008Q3

REPORT INFORMATION
  Report Type: 
  Country: None (occurrence: None)
  Receive Date: 20080805
  Receipt Date: 20080721
  Transmission Date: 20090109
  Serious: Yes (Hospitalization, Other)
  Sender: FDA-Public Use
  Company Number: US-GENENTECH-249856

PATIENT
  Sex: Male
  Weight: 81.3 kg

DRUGS (1)
  1. BEVACIZUMAB [Suspect]
     Indication: GLIOBLASTOMA MULTIFORME
     Dosage: 800 MG, Q2W
     Route: 042
     Dates: start: 20061110

REACTIONS (1)
  - CONVULSION [None]
